FAERS Safety Report 5032649-X (Version None)
Quarter: 2006Q2

REPORT INFORMATION
  Report Type: 
  Country: None (occurrence: None)
  Receive Date: 20060620
  Receipt Date: 20060609
  Transmission Date: 20061013
  Serious: Yes (Other)
  Sender: FDA-Public Use
  Company Number: 2006073925

PATIENT
  Age: 59 Year
  Sex: Male
  Weight: 83.9154 kg

DRUGS (4)
  1. LIPITOR [Suspect]
     Indication: BLOOD CHOLESTEROL INCREASED
     Dosage: 20 MG (20 MG, 1 IN 1 D), ORAL; 5-7 YEARS AGO
     Route: 048
  2. XANAX [Concomitant]
  3. DIPHENDYDRAMINE (DIPHENHYDRAMINE) [Concomitant]
  4. ADVIL (IBUPROEN) [Concomitant]

REACTIONS (3)
  - ASTHMA [None]
  - BLOOD CHOLESTEROL INCREASED [None]
  - FEELING ABNORMAL [None]
